FAERS Safety Report 6234964-0 (Version None)
Quarter: 2009Q2

REPORT INFORMATION
  Report Type: 
  Country: None (occurrence: None)
  Receive Date: 20090618
  Receipt Date: 20090615
  Transmission Date: 20091009
  Serious: Yes (Hospitalization)
  Sender: FDA-Public Use
  Company Number: D0061817A

PATIENT
  Sex: Female
  Weight: 82 kg

DRUGS (4)
  1. HYCAMTIN [Suspect]
     Indication: NON-SMALL CELL LUNG CANCER
     Route: 065
     Dates: start: 20090525, end: 20090526
  2. FORTECORTIN [Concomitant]
     Route: 042
     Dates: start: 20090525, end: 20090526
  3. CISPLATIN [Concomitant]
     Route: 065
  4. ETOPOSID [Concomitant]
     Route: 065

REACTIONS (16)
  - AGGRESSION [None]
  - AGITATION [None]
  - ALTERED STATE OF CONSCIOUSNESS [None]
  - BRAIN OEDEMA [None]
  - CEREBRAL DISORDER [None]
  - DELIRIUM [None]
  - DISORIENTATION [None]
  - DISTURBANCE IN ATTENTION [None]
  - FATIGUE [None]
  - HYPONATRAEMIA [None]
  - INAPPROPRIATE ANTIDIURETIC HORMONE SECRETION [None]
  - METASTASES TO CENTRAL NERVOUS SYSTEM [None]
  - RESTLESSNESS [None]
  - SLEEP DISORDER [None]
  - TACHYCARDIA [None]
  - TREMOR [None]
